FAERS Safety Report 6189713-1 (Version None)
Quarter: 2009Q2

REPORT INFORMATION
  Report Type: 
  Country: None (occurrence: None)
  Receive Date: 20090514
  Receipt Date: 20090506
  Transmission Date: 20091009
  Serious: Yes (Hospitalization, Other)
  Sender: FDA-Public Use
  Company Number: US-ROCHE-622532

PATIENT
  Sex: Female
  Weight: 47.6 kg

DRUGS (6)
  1. BONIVA [Suspect]
     Indication: OSTEOPENIA
     Route: 048
     Dates: start: 20090111, end: 20090308
  2. SINGULAIR [Concomitant]
     Indication: ASTHMA
     Dosage: FREQUENCY: EVERY HOUR.
     Route: 048
     Dates: start: 20070601
  3. DURICEF [Concomitant]
     Indication: OSTEOMYELITIS
     Dosage: FREQUENCY REPORTED AS EVERY 12 HOUR.
     Route: 048
     Dates: start: 20080601
  4. VITAMINE D [Concomitant]
     Indication: OSTEOPENIA
     Dosage: OTHER INDICATION: S/P VITAMIN D DEFICIENCY; START DATE: YEARS AGO; DRUG: VITAMIN D
     Route: 048
  5. CALCIUM/VITAMIN D [Concomitant]
     Indication: OSTEOPENIA
     Dosage: DRUG: CALCITRATE D, START DATE: YEARS AGO, FREQUENCY:EVERY 12 HOUR, DOSE: T TAB.
     Route: 048
  6. TEMAZEPAM [Concomitant]
     Indication: SLEEP DISORDER
     Dosage: FREQUENCY: EVERY HOUR.
     Route: 048
     Dates: start: 20050701

REACTIONS (2)
  - NECK PAIN [None]
  - SYNCOPE [None]
